APPROVED DRUG PRODUCT: TEMOZOLOMIDE
Active Ingredient: TEMOZOLOMIDE
Strength: 100MG
Dosage Form/Route: CAPSULE;ORAL
Application: A210030 | Product #003 | TE Code: AB
Applicant: HETERO LABS LTD UNIT V
Approved: Aug 23, 2024 | RLD: No | RS: No | Type: RX